FAERS Safety Report 5512663-8 (Version None)
Quarter: 2007Q4

REPORT INFORMATION
  Report Type: 
  Country: None (occurrence: None)
  Receive Date: 20071108
  Receipt Date: 20071025
  Transmission Date: 20080405
  Serious: Yes (Hospitalization)
  Sender: FDA-Public Use
  Company Number: DSA_30804_2007

PATIENT
  Sex: Male

DRUGS (15)
  1. CARDIZEM [Suspect]
     Indication: DRUG USE FOR UNKNOWN INDICATION
     Dosage: (120 MG QD ORAL)
     Route: 048
     Dates: start: 20061003, end: 20061122
  2. RANEXA [Suspect]
     Indication: ANGINA UNSTABLE
     Dosage: (500 MG BID ORAL)
     Route: 048
     Dates: start: 20061003, end: 20061122
  3. RANEXA [Suspect]
     Indication: ANGINA UNSTABLE
     Dosage: (500 MG QD ORAL)
     Route: 048
     Dates: start: 20061125
  4. RANEXA [Suspect]
     Indication: ANGINA UNSTABLE
     Dosage: (750 MG QD ORAL)
     Route: 048
     Dates: start: 20061125
  5. COREG [Concomitant]
  6. IMDUR [Concomitant]
  7. ECOTRIN [Concomitant]
  8. COUMADIN [Concomitant]
  9. LIPITOR [Concomitant]
  10. GLUCOPHAGE [Concomitant]
  11. PROTONIX [Concomitant]
  12. LOPRESSOR [Concomitant]
  13. VASOTEC [Concomitant]
  14. PRINIVIL [Concomitant]
  15. OMEGA-3 TRIGLYCERIDES [Concomitant]

REACTIONS (7)
  - ACUTE MYOCARDIAL INFARCTION [None]
  - ATRIAL FIBRILLATION [None]
  - BLOOD GLUCOSE INCREASED [None]
  - BLOOD POTASSIUM INCREASED [None]
  - CARDIAC FAILURE CONGESTIVE [None]
  - CARDIAC MURMUR [None]
  - PROTHROMBIN TIME PROLONGED [None]
